FAERS Safety Report 20886596 (Version 20)
Quarter: 2023Q4

REPORT INFORMATION
  Report Type: Report from Study
  Country: US (occurrence: US)
  Receive Date: 20220527
  Receipt Date: 20231023
  Transmission Date: 20240109
  Serious: Yes (Other)
  Sender: FDA-Public Use
  Company Number: US-NOVARTISTESTPH-NVSC2022US122464

PATIENT
  Sex: Female

DRUGS (1)
  1. KESIMPTA [Suspect]
     Active Substance: OFATUMUMAB
     Indication: Multiple sclerosis
     Dosage: 20 MG, QMO
     Route: 058
     Dates: start: 20220516

REACTIONS (23)
  - Multiple sclerosis [Unknown]
  - Throat tightness [Recovered/Resolved]
  - Pruritus [Recovered/Resolved]
  - Ear pruritus [Recovered/Resolved]
  - Pain [Not Recovered/Not Resolved]
  - COVID-19 [Unknown]
  - Head discomfort [Unknown]
  - Asthenia [Unknown]
  - Balance disorder [Unknown]
  - Fall [Unknown]
  - Dyspnoea [Unknown]
  - Mobility decreased [Unknown]
  - Muscular weakness [Unknown]
  - Fatigue [Unknown]
  - Gait inability [Unknown]
  - Nasal injury [Unknown]
  - Tremor [Not Recovered/Not Resolved]
  - Temperature intolerance [Unknown]
  - Back pain [Unknown]
  - Headache [Unknown]
  - Injection site pain [Unknown]
  - Injection site haemorrhage [Unknown]
  - Malaise [Recovered/Resolved]

NARRATIVE: CASE EVENT DATE: 20220101
